FAERS Safety Report 19942986 (Version 2)
Quarter: 2023Q1

REPORT INFORMATION
  Report Type: Report from Study
  Country: US (occurrence: None)
  Receive Date: 20211012
  Receipt Date: 20230306
  Transmission Date: 20230417
  Serious: Yes (Hospitalization)
  Sender: FDA-Public Use
  Company Number: US-ROCHE-2928657

PATIENT

DRUGS (17)
  1. VALGANCICLOVIR [Suspect]
     Active Substance: VALGANCICLOVIR
     Indication: Cytomegalovirus infection
     Route: 048
     Dates: start: 20210314, end: 20210604
  2. CIDOFOVIR [Suspect]
     Active Substance: CIDOFOVIR
     Indication: Cytomegalovirus infection
     Route: 042
     Dates: start: 20210604, end: 20210604
  3. CIDOFOVIR [Suspect]
     Active Substance: CIDOFOVIR
     Route: 042
     Dates: start: 20210611, end: 20210611
  4. FAMOTIDINE [Concomitant]
     Active Substance: FAMOTIDINE
     Dates: start: 20210209
  5. TRIAMCINOLONE [Concomitant]
     Active Substance: TRIAMCINOLONE
     Dates: start: 20190307
  6. PREDNISONE [Concomitant]
     Active Substance: PREDNISONE
     Dates: start: 20210319
  7. MAGNESIUM OXIDE [Concomitant]
     Active Substance: MAGNESIUM OXIDE
     Dates: start: 20210218
  8. TACROLIMUS [Concomitant]
     Active Substance: TACROLIMUS
     Dates: start: 20210416
  9. ACETAMINOPHEN [Concomitant]
     Active Substance: ACETAMINOPHEN
     Dates: start: 20210212
  10. ALLOPURINOL [Concomitant]
     Active Substance: ALLOPURINOL
     Dates: start: 20190307
  11. ASPIRIN [Concomitant]
     Active Substance: ASPIRIN
     Dates: start: 20210209
  12. ATORVASTATIN [Concomitant]
     Active Substance: ATORVASTATIN
     Dates: start: 20200429
  13. BUPROPION [Concomitant]
     Active Substance: BUPROPION
     Dates: start: 20190313
  14. CETIRIZINE [Concomitant]
     Active Substance: CETIRIZINE HYDROCHLORIDE
     Dates: start: 20190301
  15. ACETAMINOPHEN\HYDROCODONE [Concomitant]
     Active Substance: ACETAMINOPHEN\HYDROCODONE
  16. NYSTATIN [Concomitant]
     Active Substance: NYSTATIN
  17. SENNA AND DOCUSATE SODIUM [Concomitant]
     Active Substance: DOCUSATE SODIUM\SENNOSIDES
     Dates: start: 20210209

REACTIONS (2)
  - Cytomegalovirus infection [Not Recovered/Not Resolved]
  - Cytomegalovirus viraemia [Not Recovered/Not Resolved]

NARRATIVE: CASE EVENT DATE: 20210525
